FAERS Safety Report 25901027 (Version 1)
Quarter: 2025Q4

REPORT INFORMATION
  Report Type: Spontaneous
  Country: TR (occurrence: TR)
  Receive Date: 20251009
  Receipt Date: 20251009
  Transmission Date: 20260118
  Serious: Yes (Other)
  Sender: RANBAXY
  Company Number: TR-SUN PHARMACEUTICAL INDUSTRIES LTD-2025R1-530545

PATIENT
  Age: 4 Year
  Sex: Female

DRUGS (2)
  1. GEMCITABINE [Suspect]
     Active Substance: GEMCITABINE
     Indication: Alveolar soft part sarcoma
     Dosage: UNK
     Route: 065
  2. DOCETAXEL [Suspect]
     Active Substance: DOCETAXEL
     Indication: Alveolar soft part sarcoma
     Dosage: UNK
     Route: 065

REACTIONS (2)
  - Therapeutic response decreased [Unknown]
  - Metastases to liver [Recovering/Resolving]
